FAERS Safety Report 11876042 (Version 3)
Quarter: 2016Q1

REPORT INFORMATION
  Report Type: Spontaneous
  Country: JP (occurrence: JP)
  Receive Date: 20151229
  Receipt Date: 20160225
  Transmission Date: 20160526
  Serious: Yes (Other)
  Sender: FDA-Public Use
  Company Number: JP-SA-2015SA216529

PATIENT
  Age: 73 Year
  Sex: Male

DRUGS (9)
  1. XTANDI [Concomitant]
     Active Substance: ENZALUTAMIDE
     Dates: start: 201407, end: 201411
  2. RIBAVIRIN. [Concomitant]
     Active Substance: RIBAVIRIN
     Dates: start: 201508, end: 201510
  3. TAXOTERE [Suspect]
     Active Substance: DOCETAXEL
     Indication: PROSTATE CANCER
     Route: 042
     Dates: start: 201502, end: 201507
  4. PROSEXOL [Concomitant]
     Active Substance: ETHINYL ESTRADIOL
  5. JEVTANA [Suspect]
     Active Substance: CABAZITAXEL
     Indication: PROSTATE CANCER
     Route: 042
     Dates: start: 20151111, end: 20151111
  6. PREDONINE [Concomitant]
     Active Substance: PREDNISOLONE\PREDNISOLONE ACETATE\PREDNISOLONE SODIUM SUCCINATE
     Route: 048
  7. TAXOTERE [Suspect]
     Active Substance: DOCETAXEL
     Indication: PROSTATE CANCER
     Dosage: DOSE- 80 MG/BODY
     Route: 042
     Dates: start: 201210, end: 201312
  8. ZYTIGA [Concomitant]
     Active Substance: ABIRATERONE ACETATE
     Dates: start: 201512
  9. TAXOTERE [Suspect]
     Active Substance: DOCETAXEL
     Indication: PROSTATE CANCER
     Dosage: DOSE- 90MG/BODY
     Route: 042
     Dates: start: 201508, end: 201510

REACTIONS (1)
  - Interstitial lung disease [Recovering/Resolving]

NARRATIVE: CASE EVENT DATE: 201512
